FAERS Safety Report 19845714 (Version 1)
Quarter: 2021Q3

REPORT INFORMATION
  Report Type: Spontaneous
  Country: US (occurrence: US)
  Receive Date: 20210917
  Receipt Date: 20210917
  Transmission Date: 20211014
  Serious: Yes (Hospitalization)
  Sender: FDA-Public Use
  Company Number: None

PATIENT
  Age: 68 Year
  Sex: Female

DRUGS (5)
  1. AVONEX [Suspect]
     Active Substance: INTERFERON BETA-1A
     Indication: MULTIPLE SCLEROSIS
     Dosage: ?          OTHER FREQUENCY:WEEKLY;?
     Route: 030
     Dates: start: 20150729
  2. VITAMIN D [Concomitant]
     Active Substance: VITAMIN D NOS
     Dates: start: 20170516
  3. CALCIUM [Concomitant]
     Active Substance: CALCIUM
     Dates: start: 20200225
  4. PREDNISONE. [Concomitant]
     Active Substance: PREDNISONE
     Dates: start: 20210621
  5. ALENDRONATE [Suspect]
     Active Substance: ALENDRONATE SODIUM

REACTIONS (2)
  - Sepsis [None]
  - Intentional dose omission [None]

NARRATIVE: CASE EVENT DATE: 20210907
